FAERS Safety Report 19770874 (Version 2)
Quarter: 2021Q3

REPORT INFORMATION
  Report Type: Spontaneous
  Country: US (occurrence: US)
  Receive Date: 20210831
  Receipt Date: 20210831
  Transmission Date: 20211014
  Serious: Yes (Other)
  Sender: FDA-Public Use
  Company Number: US-SAMOHPHARM-2021003113

PATIENT

DRUGS (1)
  1. CARBAGLU [Suspect]
     Active Substance: CARGLUMIC ACID
     Indication: HYPERAMMONAEMIA
     Dosage: 200 MILLIGRAM, BID
     Dates: start: 20200812

REACTIONS (6)
  - Rash [Unknown]
  - Erythema [Unknown]
  - Product dose omission issue [Recovered/Resolved]
  - Lethargy [Unknown]
  - Choking [Unknown]
  - Fatigue [Unknown]
